FAERS Safety Report 16667662 (Version 3)
Quarter: 2019Q3

REPORT INFORMATION
  Report Type: Spontaneous
  Country: JP (occurrence: JP)
  Receive Date: 20190805
  Receipt Date: 20190827
  Transmission Date: 20191004
  Serious: Yes (Life-Threatening, Hospitalization)
  Sender: FDA-Public Use
  Company Number: JP-TAKEDA-2019TUS046220

PATIENT
  Age: 79 Year
  Sex: Male

DRUGS (9)
  1. RABEPRAZOLE SODIUM. [Concomitant]
     Active Substance: RABEPRAZOLE SODIUM
     Indication: GASTROOESOPHAGEAL REFLUX DISEASE
     Dosage: 10 MILLIGRAM, QD
     Route: 048
  2. FEBURIC [Suspect]
     Active Substance: FEBUXOSTAT
     Indication: HYPERURICAEMIA
     Dosage: 20 MILLIGRAM, QD
     Route: 048
     Dates: start: 20190606
  3. ALDACTONE A [Suspect]
     Active Substance: SPIRONOLACTONE
     Indication: CARDIAC FAILURE CONGESTIVE
     Dosage: 25 MILLIGRAM, QD
     Route: 048
  4. RENIVACE [Suspect]
     Active Substance: ENALAPRIL
     Indication: CARDIAC FAILURE CONGESTIVE
     Dosage: 5 MILLIGRAM, QD
     Route: 048
  5. AZOSEMIDE [Concomitant]
     Active Substance: AZOSEMIDE
     Indication: CARDIAC FAILURE CONGESTIVE
     Dosage: 30 MILLIGRAM, QD
     Route: 048
  6. SILODOSIN. [Concomitant]
     Active Substance: SILODOSIN
     Indication: PROSTATISM
     Dosage: 4 MILLIGRAM, BID
     Route: 048
  7. FEXOFENADINE HYDROCHLORIDE. [Concomitant]
     Active Substance: FEXOFENADINE HYDROCHLORIDE
     Dosage: 60 MILLIGRAM, BID
     Route: 048
     Dates: start: 201904
  8. ISOSORBIDE DINITRATE. [Concomitant]
     Active Substance: ISOSORBIDE DINITRATE
     Indication: ANGINA PECTORIS
     Dosage: 40 MILLIGRAM, QD
     Route: 061
  9. PROSEXOL [Concomitant]
     Active Substance: ETHINYL ESTRADIOL
     Indication: PROSTATISM
     Dosage: 0.5 MILLIGRAM, BID
     Route: 048

REACTIONS (2)
  - Cardiac disorder [Unknown]
  - Hyperkalaemia [Unknown]

NARRATIVE: CASE EVENT DATE: 20190725
